FAERS Safety Report 7655374-5 (Version None)
Quarter: 2011Q3

REPORT INFORMATION
  Report Type: 
  Country: None (occurrence: None)
  Receive Date: 20110729
  Receipt Date: 20110714
  Transmission Date: 20111222
  Serious: Yes (Hospitalization)
  Sender: FDA-Public Use
  Company Number: TPA2011A04037

PATIENT
  Age: 69 Year
  Sex: Female

DRUGS (6)
  1. PIOGLITAZONE HYDROCHLORIDE [Suspect]
     Indication: TYPE 2 DIABETES MELLITUS
     Dates: start: 20100407
  2. PANADO (PARACETAMOL) [Concomitant]
  3. THIAZIDE (HYDROCHLOROTHIAZIDE) [Concomitant]
  4. AUGMENTIN (AMOXICILLIN SODIUM, CLAVULANATE POTASSIUM) [Concomitant]
  5. ACE-INHIBITORS (ACE INHIBITOR NOS) [Concomitant]
  6. ANTI-DIABETES (DRUG USED IN DIABETES) [Concomitant]

REACTIONS (2)
  - PNEUMONIA [None]
  - CEREBROVASCULAR ACCIDENT [None]
